FAERS Safety Report 14908892 (Version 1)
Quarter: 2018Q2

REPORT INFORMATION
  Report Type: Spontaneous
  Country: US (occurrence: US)
  Receive Date: 20180517
  Receipt Date: 20180517
  Transmission Date: 20180711
  Serious: No
  Sender: FDA-Public Use
  Company Number: US-APOTEX-2017AP017225

PATIENT
  Age: 21 Year
  Sex: Female

DRUGS (7)
  1. VALACYCLOVIR TABLETS USP [Suspect]
     Active Substance: VALACYCLOVIR HYDROCHLORIDE
     Indication: HERPES SIMPLEX TEST POSITIVE
     Route: 065
  2. MAGNESIUM SULFATE. [Suspect]
     Active Substance: MAGNESIUM SULFATE
     Indication: PREMATURE LABOUR
     Route: 065
  3. BETAMETHASONE. [Suspect]
     Active Substance: BETAMETHASONE
     Indication: PREMATURE LABOUR
     Route: 065
  4. AMPICILLIN [Suspect]
     Active Substance: AMPICILLIN
     Indication: PRODUCT USED FOR UNKNOWN INDICATION
     Route: 065
  5. PENICILLIN                         /00000901/ [Suspect]
     Active Substance: PENICILLIN G
     Indication: PREMATURE LABOUR
     Route: 065
  6. METHYLDOPA. [Suspect]
     Active Substance: METHYLDOPA
     Indication: PRODUCT USED FOR UNKNOWN INDICATION
     Dosage: 250 MG, BID
     Route: 065
  7. ERYTHROMYCIN. [Suspect]
     Active Substance: ERYTHROMYCIN
     Indication: PRODUCT USED FOR UNKNOWN INDICATION
     Route: 065

REACTIONS (1)
  - Exposure during pregnancy [Unknown]
